FAERS Safety Report 14751811 (Version 1)
Quarter: 2018Q2

REPORT INFORMATION
  Report Type: Spontaneous
  Country: US (occurrence: US)
  Receive Date: 20180412
  Receipt Date: 20180412
  Transmission Date: 20180711
  Serious: No
  Sender: FDA-Public Use
  Company Number: US-BEH-2018089584

PATIENT
  Sex: Female
  Weight: 129.25 kg

DRUGS (15)
  1. DALIRESP [Concomitant]
     Active Substance: ROFLUMILAST
     Route: 065
  2. ALBUTEROL SULFATE. [Concomitant]
     Active Substance: ALBUTEROL SULFATE
     Route: 065
  3. HYDROCHLOROTHIAZIDE W/METOPROLOL [Concomitant]
     Active Substance: HYDROCHLOROTHIAZIDE\METOPROLOL
     Route: 065
  4. ZEMAIRA [Suspect]
     Active Substance: .ALPHA.1-PROTEINASE INHIBITOR HUMAN
     Indication: ALPHA-1 ANTI-TRYPSIN DEFICIENCY
     Dosage: UNK
     Route: 042
  5. SODIUM CHLORIDE. [Concomitant]
     Active Substance: SODIUM CHLORIDE
     Route: 065
  6. ADVIL (MEFENAMIC ACID) [Concomitant]
     Active Substance: MEFENAMIC ACID
     Route: 065
  7. ADVAIR HFA [Concomitant]
     Active Substance: FLUTICASONE PROPIONATE\SALMETEROL XINAFOATE
     Route: 065
  8. ZEMAIRA [Suspect]
     Active Substance: .ALPHA.1-PROTEINASE INHIBITOR HUMAN
     Dosage: 60 MG/KG, QW
     Route: 042
     Dates: start: 20100326
  9. OXYGEN. [Concomitant]
     Active Substance: OXYGEN
     Route: 065
  10. OMEPRAZOLE. [Concomitant]
     Active Substance: OMEPRAZOLE
     Route: 065
  11. ELIQUIS [Concomitant]
     Active Substance: APIXABAN
     Route: 065
  12. LMX                                /00033401/ [Concomitant]
     Route: 065
  13. SPIRIVA [Concomitant]
     Active Substance: TIOTROPIUM BROMIDE MONOHYDRATE
     Route: 065
  14. METOPROLOL. [Concomitant]
     Active Substance: METOPROLOL
     Dosage: UNK, QD
     Route: 065
  15. EPINEPHRINE. [Concomitant]
     Active Substance: EPINEPHRINE
     Route: 065

REACTIONS (2)
  - Chest discomfort [Unknown]
  - Pain in extremity [Unknown]
